FAERS Safety Report 17967354 (Version 1)
Quarter: 2020Q3

REPORT INFORMATION
  Report Type: Spontaneous
  Country: NL (occurrence: NL)
  Receive Date: 20200701
  Receipt Date: 20200701
  Transmission Date: 20201103
  Serious: Yes (Hospitalization, Other)
  Sender: FDA-Public Use
  Company Number: NL-TEVA-2020-NL-1792934

PATIENT
  Age: 73 Year
  Sex: Male
  Weight: 85.3 kg

DRUGS (9)
  1. INSULINE GLARGINE [Concomitant]
     Active Substance: INSULIN GLARGINE
     Dosage: INJECTION LIQUID, 100 UNITS / ML, THERAPY START DATE : ASKU, THERAPY END DATE: ASKU
  2. COLECALCIFEROL [Concomitant]
     Active Substance: CHOLECALCIFEROL
     Dosage: 5600 UNITS,THERAPY START DATE : ASKU, THERAPY END DATE: ASKU
  3. DARBEPOETINE ALFA [Concomitant]
     Active Substance: DARBEPOETIN ALFA
     Dosage: INJECTION LIQUID, 40 MCG / ML, THERAPY START DATE : ASKU, THERAPY END DATE: ASKU
  4. ACENOCOUMAROL [Concomitant]
     Active Substance: ACENOCOUMAROL
     Dosage: 1 MG,THERAPY START DATE : ASKU, THERAPY END DATE: ASKU
  5. ACETYLCYSTEINE. [Concomitant]
     Active Substance: ACETYLCYSTEINE
     Dosage: 600 MG, THERAPY START DATE : ASKU, THERAPY END DATE: ASKU
  6. KINIDINE DRAGEE 200MG [Suspect]
     Active Substance: QUINIDINE
     Indication: PROPHYLAXIS
     Dosage: 600 MILLIGRAM DAILY;
     Dates: start: 20200326, end: 20200417
  7. INSULINE ASPART [Concomitant]
     Dosage: INJECTION / INFUSION, 1 UNITS PER UNITS, THERAPY START DATE : ASKU, THERAPY END DATE: ASKU
  8. FUROSEMIDE. [Concomitant]
     Active Substance: FUROSEMIDE
     Dosage: INJECTION / INFUSION, 1 MG / MG, THERAPY START DATE : ASKU, THERAPY END DATE: ASKU
  9. HYDROXOCOBALAMINE [Concomitant]
     Active Substance: HYDROXOCOBALAMIN
     Dosage: INJECTION LIQUID, 500 MCG / ML, THERAPY START DATE : ASKU, THERAPY END DATE: ASKU

REACTIONS (1)
  - Drug reaction with eosinophilia and systemic symptoms [Recovered/Resolved]

NARRATIVE: CASE EVENT DATE: 20200413
